FAERS Safety Report 4500130-X (Version None)
Quarter: 2004Q4

REPORT INFORMATION
  Report Type: 
  Country: None (occurrence: None)
  Receive Date: 20041112
  Receipt Date: 20040811
  Transmission Date: 20050328
  Serious: Yes (Disabling)
  Sender: FDA-Public Use
  Company Number: FR-ROCHE-377311

PATIENT
  Age: 57 Year
  Sex: Male
  Weight: 86 kg

DRUGS (6)
  1. CELLCEPT [Suspect]
     Route: 048
  2. ACTONEL [Suspect]
     Indication: OSTEOPOROSIS
     Route: 048
  3. KENZEN [Suspect]
     Indication: HYPERTENSION
     Route: 048
     Dates: start: 20001222
  4. TAHOR [Suspect]
     Indication: HYPERLIPIDAEMIA
     Route: 048
  5. PROGRAF [Suspect]
     Route: 048
  6. ZYLORIC [Suspect]
     Indication: DRUG USE FOR UNKNOWN INDICATION
     Route: 048

REACTIONS (1)
  - TENDON RUPTURE [None]
